FAERS Safety Report 17810154 (Version 1)
Quarter: 2020Q2

REPORT INFORMATION
  Report Type: Spontaneous
  Country: US (occurrence: US)
  Receive Date: 20200521
  Receipt Date: 20200521
  Transmission Date: 20200714
  Serious: Yes (Other)
  Sender: FDA-Public Use
  Company Number: US-SPECGX-T202000919

PATIENT
  Sex: Female

DRUGS (2)
  1. OXYCODONE/ACETAMINOPHEN [Suspect]
     Active Substance: ACETAMINOPHEN\OXYCODONE HYDROCHLORIDE
     Indication: PAIN
     Dosage: 10/325 MG, 4 TIMES A DAY
     Route: 065
  2. MORPHINE [Concomitant]
     Active Substance: MORPHINE
     Indication: PAIN
     Dosage: UNK
     Route: 065

REACTIONS (7)
  - Headache [Unknown]
  - Intestinal operation [Unknown]
  - Intestinal obstruction [Unknown]
  - Dysgeusia [Unknown]
  - Drug ineffective [Unknown]
  - Constipation [Unknown]
  - Dizziness [Unknown]
